FAERS Safety Report 12241559 (Version 2)
Quarter: 2016Q2

REPORT INFORMATION
  Report Type: Spontaneous
  Country: SE (occurrence: SE)
  Receive Date: 20160406
  Receipt Date: 20160414
  Transmission Date: 20160815
  Serious: Yes (Life-Threatening, Other)
  Sender: FDA-Public Use
  Company Number: SE-SA-2016SA068410

PATIENT
  Sex: Female

DRUGS (2)
  1. EKVACILLIN [Concomitant]
     Active Substance: CLOXACILLIN SODIUM
     Dates: start: 20150410
  2. CEFOTAXIME [Suspect]
     Active Substance: CEFOTAXIME SODIUM
     Indication: ANTIBIOTIC PROPHYLAXIS
     Route: 042
     Dates: start: 20150410, end: 20150410

REACTIONS (3)
  - Cardiac arrest [Unknown]
  - Obstructive airways disorder [Unknown]
  - Wrong drug administered [Unknown]

NARRATIVE: CASE EVENT DATE: 20150410
